FAERS Safety Report 12718764 (Version 2)
Quarter: 2016Q4

REPORT INFORMATION
  Report Type: Spontaneous
  Country: US (occurrence: US)
  Receive Date: 20160906
  Receipt Date: 20161019
  Transmission Date: 20170207
  Serious: No
  Sender: FDA-Public Use
  Company Number: US-GLAXOSMITHKLINE-US2016128066

PATIENT

DRUGS (1)
  1. TRANSDERM SCOP [Suspect]
     Active Substance: SCOPOLAMINE
     Indication: SECRETION DISCHARGE
     Dosage: UNK
     Dates: start: 20160820

REACTIONS (4)
  - Drug administered to patient of inappropriate age [Unknown]
  - Product quality issue [Unknown]
  - Product leakage [Unknown]
  - Off label use [Unknown]
